FAERS Safety Report 24371087 (Version 1)
Quarter: 2024Q3

REPORT INFORMATION
  Report Type: Other
  Country: US (occurrence: US)
  Receive Date: 20240927
  Receipt Date: 20240927
  Transmission Date: 20241017
  Serious: Yes (Other)
  Sender: NUVO PHARMACEUTICALS
  Company Number: US-Nuvo Pharmaceuticals Inc-2162128

PATIENT
  Age: 28 Year
  Sex: Female

DRUGS (2)
  1. PHENTERMINE HYDROCHLORIDE [Suspect]
     Active Substance: PHENTERMINE HYDROCHLORIDE
     Indication: Weight decreased
  2. VITAMINS [Concomitant]
     Active Substance: VITAMINS

REACTIONS (1)
  - Arteriospasm coronary [Recovered/Resolved]
